FAERS Safety Report 8485713-7 (Version None)
Quarter: 2012Q2

REPORT INFORMATION
  Report Type: 
  Country: None (occurrence: None)
  Receive Date: 20120626
  Receipt Date: 20120618
  Transmission Date: 20120825
  Serious: Yes (Other)
  Sender: FDA-Public Use
  Company Number: FK201201712

PATIENT
  Age: 19 Year
  Sex: Male
  Weight: 19.7 kg

DRUGS (1)
  1. CALCIUM GLUCONATE [Suspect]
     Indication: HYPOCALCAEMIA
     Dosage: 190 MG, 1 IN 6 HR, INTRAVENOUS (NOT OTHERWISE SPECIFIED)
     Route: 042

REACTIONS (4)
  - VASCULAR CALCIFICATION [None]
  - DEVICE OCCLUSION [None]
  - SWEAT GLAND DISORDER [None]
  - CALCINOSIS [None]
